FAERS Safety Report 5719378-1 (Version None)
Quarter: 2008Q2

REPORT INFORMATION
  Report Type: 
  Country: None (occurrence: None)
  Receive Date: 20080428
  Receipt Date: 20080421
  Transmission Date: 20081010
  Serious: Yes (Other)
  Sender: FDA-Public Use
  Company Number: US-KINGPHARMUSA00001-K200800455

PATIENT

DRUGS (10)
  1. FLORINEF [Suspect]
     Dates: start: 20080326, end: 20080330
  2. FLORINEF [Suspect]
     Dates: start: 20080331
  3. EFFEXOR XR [Suspect]
     Dosage: 150 MG, UNK
  4. MADOPAR                            /00349201/ [Suspect]
     Dosage: 125 MG, QID
     Dates: start: 20080326, end: 20080327
  5. MADOPAR                            /00349201/ [Suspect]
     Dosage: 62.5 MG, QID
     Dates: start: 20080328
  6. ACETYLSALICYLIC ACID SRT [Concomitant]
     Dosage: 75 MG, QD
  7. DOMPERIDONE [Concomitant]
     Dosage: 10 MG, TID
  8. CALCIUM CARBONATE [Concomitant]
  9. SENNA                              /00142201/ [Concomitant]
  10. QUETIAPINE FUMARATE [Concomitant]
     Dosage: 25 MG, BID

REACTIONS (2)
  - HALLUCINATION, VISUAL [None]
  - ORTHOSTATIC HYPOTENSION [None]
